FAERS Safety Report 10535426 (Version 2)
Quarter: 2014Q4

REPORT INFORMATION
  Report Type: Spontaneous
  Country: JP (occurrence: JP)
  Receive Date: 20141022
  Receipt Date: 20141022
  Transmission Date: 20150529
  Serious: Yes (Other)
  Sender: FDA-Public Use
  Company Number: JP-GE HEALTHCARE MEDICAL DIAGNOSTICS-MSTR-PR-1406S-0014

PATIENT
  Age: 58 Year
  Sex: Male
  Weight: 65 kg

DRUGS (5)
  1. METASTRON [Suspect]
     Active Substance: STRONTIUM CHLORIDE SR-89
     Indication: DIAGNOSTIC PROCEDURE
  2. DEGARELIX ACETATE [Concomitant]
     Active Substance: DEGARELIX ACETATE
     Dates: start: 20120123, end: 20130904
  3. DOCETAXEL. [Concomitant]
     Active Substance: DOCETAXEL
     Dates: start: 20121022, end: 20131213
  4. METASTRON [Suspect]
     Active Substance: STRONTIUM CHLORIDE SR-89
     Indication: BONE PAIN
  5. METASTRON [Suspect]
     Active Substance: STRONTIUM CHLORIDE SR-89
     Indication: METASTASES TO BONE
     Route: 042
     Dates: start: 20140515, end: 20140515

REACTIONS (3)
  - Dyspnoea [Not Recovered/Not Resolved]
  - Platelet count decreased [Not Recovered/Not Resolved]
  - General physical health deterioration [Not Recovered/Not Resolved]

NARRATIVE: CASE EVENT DATE: 201406
